FAERS Safety Report 8141955-1 (Version None)
Quarter: 2012Q1

REPORT INFORMATION
  Report Type: 
  Country: None (occurrence: None)
  Receive Date: 20120216
  Receipt Date: 20120209
  Transmission Date: 20120608
  Serious: Yes (Other)
  Sender: FDA-Public Use
  Company Number: IE-GLAXOSMITHKLINE-B0781176A

PATIENT
  Age: 43 Year
  Sex: Female

DRUGS (2)
  1. VIBRAMYCIN [Concomitant]
     Indication: ACNE
     Dates: start: 20111206, end: 20111208
  2. DUAC [Suspect]
     Indication: ACNE
     Route: 061
     Dates: start: 20111206, end: 20111208

REACTIONS (3)
  - DERMATITIS [None]
  - ERYTHEMA [None]
  - EYE SWELLING [None]
